FAERS Safety Report 5353716-7 (Version None)
Quarter: 2007Q2

REPORT INFORMATION
  Report Type: 
  Country: None (occurrence: None)
  Receive Date: 20070612
  Receipt Date: 20070601
  Transmission Date: 20071010
  Serious: Yes (Hospitalization)
  Sender: FDA-Public Use
  Company Number: US-AMGEN-STX227583

PATIENT
  Sex: Female

DRUGS (2)
  1. ENBREL [Suspect]
     Indication: RHEUMATOID ARTHRITIS
     Route: 058
     Dates: start: 20060401
  2. METHOTREXATE [Concomitant]
     Route: 065
     Dates: start: 20020101

REACTIONS (4)
  - OVARIAN CYST [None]
  - RESPIRATORY TRACT INFECTION [None]
  - SINUS CONGESTION [None]
  - SINUSITIS [None]
